FAERS Safety Report 7474772-6 (Version None)
Quarter: 2011Q2

REPORT INFORMATION
  Report Type: 
  Country: None (occurrence: None)
  Receive Date: 20110505
  Receipt Date: 20110428
  Transmission Date: 20111010
  Serious: Yes (Life-Threatening)
  Sender: FDA-Public Use
  Company Number: GER/UKI/11/0018124

PATIENT
  Age: 83 Year
  Sex: Female

DRUGS (17)
  1. CIPROFLOXACIN [Suspect]
     Indication: PNEUMONIA
     Dosage: 750 MG, 2 IN 1 D, ORAL
     Route: 048
     Dates: start: 20110407, end: 20110408
  2. FERROUS SULFATE TAB [Concomitant]
  3. BECLOMETHASONE DIPROPIONATE [Concomitant]
  4. GALANTAMINE (GALANTAMINE) [Concomitant]
  5. ASPIRIN [Concomitant]
  6. AMIODARONE (AMIODARONE) [Concomitant]
  7. IPRATROPIUM BROMIDE [Concomitant]
  8. AZTREONAM (AZTREONAM) [Concomitant]
  9. ACETAMINOPHEN [Concomitant]
  10. GAVISCON [Concomitant]
  11. ALBUTEROL SULFATE [Concomitant]
  12. NUTRITIONAL SUPPLEMENT (ALL OTHER THERAPEUTIC PRODUCTS) [Concomitant]
  13. OMEPRAZOLE [Concomitant]
  14. CARBOCISTEINE (CARBOCISTEINE) [Concomitant]
  15. DIPYRIDAMOLE [Concomitant]
  16. FRAGMIN [Concomitant]
  17. FLUOXETINE [Concomitant]

REACTIONS (2)
  - HYPOGLYCAEMIA [None]
  - ELECTROCARDIOGRAM T WAVE INVERSION [None]
